FAERS Safety Report 9385744 (Version 1)
Quarter: 2013Q3

REPORT INFORMATION
  Report Type: Spontaneous
  Country: US (occurrence: US)
  Receive Date: 20130705
  Receipt Date: 20130705
  Transmission Date: 20140515
  Serious: Yes (Hospitalization)
  Sender: FDA-Public Use
  Company Number: US-UCBSA-090822

PATIENT
  Age: 30 Year
  Sex: Female

DRUGS (20)
  1. CIMZIA [Suspect]
     Indication: CROHN^S DISEASE
     Route: 058
     Dates: start: 20120330
  2. TYLENOL [Concomitant]
     Dosage: DOSE : 1000 MG EVERY 6 HOUSRS AS REQUIRED
  3. IMURAN [Concomitant]
  4. MVI GUMMY [Concomitant]
     Dosage: DOSE : 2 TABLETS
  5. OLOPATADINE [Concomitant]
     Dosage: 0.2% , DAILY DOSE : 1 DROP AS REQUIRED
  6. PRILOSEC [Concomitant]
  7. MIRALAX [Concomitant]
     Dosage: DOSE : 17 GM BID AS REQUIRED
  8. SACCHAROMYCES BOULARDII [Concomitant]
     Dosage: DOSE : 250
  9. TRAMADOL [Concomitant]
     Dosage: DOSE : 50 MG EVERY 6 HOURS AS REQUIRED
  10. VITAMIN D [Concomitant]
  11. QUESTRON [Concomitant]
  12. RIFAXIMIN [Concomitant]
     Indication: CROHN^S DISEASE
     Dates: start: 20110507, end: 20130114
  13. RIFAXIMIN [Concomitant]
     Indication: CROHN^S DISEASE
     Dates: start: 20130409
  14. AZATHIOPRINE [Concomitant]
     Indication: CROHN^S DISEASE
  15. ACETAMINOPHEN [Concomitant]
  16. POLYETHYLENE GLYCOL [Concomitant]
  17. NORTRIPTYLINE [Concomitant]
  18. NORTRIPTYLINE [Concomitant]
     Dosage: DOSE INCREASED
  19. BUDESONIDE [Concomitant]
     Indication: CROHN^S DISEASE
     Dates: start: 200204, end: 201204
  20. PREDNISONE [Concomitant]
     Indication: CROHN^S DISEASE
     Dates: start: 2002, end: 20120621

REACTIONS (2)
  - Crohn^s disease [Unknown]
  - Haematoma [Unknown]
